FAERS Safety Report 9744634 (Version 2)
Quarter: 2014Q2

REPORT INFORMATION
  Report Type: Spontaneous
  Country: US (occurrence: US)
  Receive Date: 20131210
  Receipt Date: 20140408
  Transmission Date: 20141212
  Serious: Yes (Hospitalization)
  Sender: FDA-Public Use
  Company Number: US-GILEAD-2013-0089661

PATIENT
  Sex: Female

DRUGS (19)
  1. TAMIFLU [Concomitant]
  2. FLOMAX                             /00889901/ [Concomitant]
  3. ADVAIR [Concomitant]
  4. DUONEB [Concomitant]
  5. MEGACE [Concomitant]
  6. LETAIRIS [Suspect]
     Indication: PRODUCT USED FOR UNKNOWN INDICATION
     Dosage: 5 MG, UNK
     Route: 048
  7. HIZENTRA [Suspect]
  8. SYMBICORT [Concomitant]
  9. SPIRIVA HANDIHALER [Concomitant]
  10. ACETAMINOPHEN W/HYDROCODONE [Concomitant]
  11. DALIRESP [Concomitant]
  12. XANAX [Concomitant]
  13. VENTOLIN                           /00139501/ [Concomitant]
  14. MUCINEX [Concomitant]
  15. PERCOCET                           /00446701/ [Concomitant]
  16. LEVOFLOXACIN [Concomitant]
  17. LOVASTATIN [Concomitant]
  18. FLEXERIL                           /00428402/ [Concomitant]
  19. ALBUTEROL                          /00139501/ [Concomitant]

REACTIONS (1)
  - Bronchitis [Unknown]
